FAERS Safety Report 8841714 (Version 1)
Quarter: 2012Q4

REPORT INFORMATION
  Report Type: Spontaneous
  Country: US (occurrence: None)
  Receive Date: 20121011
  Receipt Date: 20121011
  Transmission Date: 20130627
  Serious: Yes (Hospitalization)
  Sender: FDA-Public Use
  Company Number: 2012SUN00116

PATIENT
  Age: 20 Year
  Sex: Male

DRUGS (5)
  1. QUETIAPINE FUMARATE [Suspect]
     Indication: DEPRESSION
  2. ESCITALOPRAM [Suspect]
     Indication: DEPRESSION
  3. CLONAZEPAM [Suspect]
     Indication: DEPRESSION
  4. PERCOCET [Suspect]
     Indication: ABDOMINAL PAIN
  5. COCAINE [Suspect]
     Indication: DRUG USE FOR UNKNOWN INDICATION

REACTIONS (5)
  - Intentional overdose [None]
  - Serotonin syndrome [None]
  - Abdominal pain [None]
  - Depressed mood [None]
  - Intentional drug misuse [None]
